FAERS Safety Report 23128077 (Version 1)
Quarter: 2023Q4

REPORT INFORMATION
  Report Type: Report from Study
  Country: US (occurrence: US)
  Receive Date: 20231031
  Receipt Date: 20231031
  Transmission Date: 20240109
  Serious: Yes (Hospitalization, Other)
  Sender: FDA-Public Use
  Company Number: US-002147023-NVSC2021US232692

PATIENT
  Age: 51 Year
  Sex: Female
  Weight: 90.703 kg

DRUGS (13)
  1. CHLORAPREP [Suspect]
     Active Substance: CHLORHEXIDINE GLUCONATE\ISOPROPYL ALCOHOL
     Indication: Product used for unknown indication
     Dosage: UNK
     Route: 065
  2. OXYCODONE [Suspect]
     Active Substance: OXYCODONE
     Indication: Pain
     Dosage: UNK
     Route: 065
  3. ORENITRAM [Suspect]
     Active Substance: TREPROSTINIL
     Indication: Product used for unknown indication
     Dosage: UNK
     Route: 065
  4. REMODULIN [Suspect]
     Active Substance: TREPROSTINIL
     Indication: Product used for unknown indication
     Dosage: UNK
     Route: 042
  5. REMODULIN [Suspect]
     Active Substance: TREPROSTINIL
     Dosage: UNK
     Route: 058
     Dates: start: 20230906, end: 20230919
  6. TRAMADOL [Suspect]
     Active Substance: TRAMADOL\TRAMADOL HYDROCHLORIDE
     Indication: Pain
     Dosage: UNK
     Route: 065
  7. TREPROSTINIL [Suspect]
     Active Substance: TREPROSTINIL
     Indication: Pulmonary arterial hypertension
     Dosage: 25 NG/KG/MIN, CONT
     Route: 042
     Dates: start: 20211007
  8. TREPROSTINIL [Suspect]
     Active Substance: TREPROSTINIL
     Dosage: 23 NG/KG/ MIN, CONT
     Route: 042
  9. TREPROSTINIL [Suspect]
     Active Substance: TREPROSTINIL
     Dosage: 23 NG/KG/ MIN, CONT
     Route: 042
     Dates: start: 20211007
  10. ADEMPAS [Concomitant]
     Active Substance: RIOCIGUAT
     Indication: Product used for unknown indication
     Dosage: UNK
     Route: 065
  11. AMBRISENTAN [Concomitant]
     Active Substance: AMBRISENTAN
     Indication: Product used for unknown indication
     Dosage: UNK
     Route: 065
  12. LEVOFLOXACIN [Concomitant]
     Active Substance: LEVOFLOXACIN
     Indication: Product used for unknown indication
     Dosage: 750 MG
     Route: 065
  13. REMERON [Concomitant]
     Active Substance: MIRTAZAPINE
     Indication: Sleep disorder
     Dosage: UNK
     Route: 065

REACTIONS (43)
  - Hypervolaemia [Unknown]
  - Diabetes mellitus [Unknown]
  - Haemoptysis [Unknown]
  - Vascular device infection [Unknown]
  - Pneumonia [Unknown]
  - Sepsis [Recovering/Resolving]
  - Treatment failure [Unknown]
  - Device breakage [Unknown]
  - Arthralgia [Unknown]
  - Flushing [Recovered/Resolved]
  - Flushing [Unknown]
  - Weight increased [Unknown]
  - Weight decreased [Unknown]
  - Nasopharyngitis [Unknown]
  - Skin burning sensation [Unknown]
  - Pruritus [Unknown]
  - Skin irritation [Unknown]
  - Skin disorder [Unknown]
  - Psoriasis [Unknown]
  - Urticaria [Unknown]
  - Oral discomfort [Unknown]
  - Oropharyngeal discomfort [Unknown]
  - Memory impairment [Unknown]
  - Vaginal haemorrhage [Unknown]
  - Fungal infection [Unknown]
  - Anxiety [Unknown]
  - Vision blurred [Unknown]
  - Nausea [Recovered/Resolved]
  - Nausea [Unknown]
  - Headache [Recovered/Resolved]
  - Headache [Unknown]
  - Fatigue [Unknown]
  - Malaise [Unknown]
  - Device physical property issue [Unknown]
  - Infusion site irritation [Unknown]
  - Infusion site erythema [Unknown]
  - Infusion site rash [Unknown]
  - Application site reaction [Unknown]
  - Complication associated with device [Unknown]
  - Incorrect dose administered [Unknown]
  - Vertigo [Unknown]
  - Application site pain [Recovered/Resolved]
  - Drug ineffective [Unknown]

NARRATIVE: CASE EVENT DATE: 20220120
